FAERS Safety Report 6842564-4 (Version None)
Quarter: 2010Q3

REPORT INFORMATION
  Report Type: 
  Country: None (occurrence: None)
  Receive Date: 20100714
  Receipt Date: 20070801
  Transmission Date: 20110219
  Serious: No
  Sender: FDA-Public Use
  Company Number: US-PFIZER INC-2007064745

PATIENT
  Sex: Male
  Weight: 108.9 kg

DRUGS (5)
  1. CHANTIX [Suspect]
     Indication: SMOKING CESSATION THERAPY
     Route: 048
     Dates: start: 20070719, end: 20070727
  2. ANTIHYPERTENSIVES [Concomitant]
     Route: 048
     Dates: start: 19950101
  3. ZETIA [Concomitant]
     Route: 048
     Dates: start: 20040101
  4. ACETYLSALICYLIC ACID [Concomitant]
     Route: 048
  5. GARLIC [Concomitant]
     Route: 048

REACTIONS (2)
  - FLATULENCE [None]
  - NAUSEA [None]
